FAERS Safety Report 10247426 (Version 1)
Quarter: 2014Q2

REPORT INFORMATION
  Report Type: Spontaneous
  Country: FR (occurrence: FR)
  Receive Date: 20140619
  Receipt Date: 20140619
  Transmission Date: 20141212
  Serious: Yes (Other)
  Sender: FDA-Public Use
  Company Number: FR-TEVA-487809ISR

PATIENT
  Age: 27 Year
  Sex: Female

DRUGS (5)
  1. CIPROFLOXACINE TEVA 500 MG [Suspect]
     Indication: GASTROENTERITIS
     Dosage: 500 MILLIGRAM DAILY;
     Route: 048
     Dates: start: 20120925, end: 20120925
  2. DOMPERIDONE TEVA 10 MG [Suspect]
     Indication: GASTROENTERITIS
     Dosage: 6 TABLET DAILY;
     Route: 048
     Dates: start: 20120925
  3. TIORFAN 100 MG [Suspect]
     Indication: GASTROENTERITIS
     Dosage: 3 DOSAGE FORMS DAILY;
     Route: 048
     Dates: start: 20120925
  4. DOLIPRANE 1000 MG [Suspect]
     Indication: GASTROENTERITIS
     Dosage: 3 TABLET DAILY;
     Route: 048
     Dates: start: 20120925
  5. POLERY ADULTES [Suspect]
     Indication: NASOPHARYNGITIS
     Dosage: 3 DOSAGE FORMS DAILY; DOSAGE FORMS = TABLESPOONS
     Route: 048
     Dates: start: 20120925

REACTIONS (2)
  - Convulsion [Recovered/Resolved]
  - Loss of consciousness [Recovered/Resolved]
